FAERS Safety Report 10773210 (Version 2)
Quarter: 2017Q1

REPORT INFORMATION
  Report Type: Other
  Country: US (occurrence: US)
  Receive Date: 20150208
  Receipt Date: 20170210
  Transmission Date: 20170428
  Serious: Yes (Other)
  Sender: FDA-Public Use
  Company Number: US-ACORDA-ACO_106816_2014

PATIENT
  Age: 23 Year
  Sex: Female
  Weight: 89.8 kg

DRUGS (4)
  1. IRBESARTAN. [Concomitant]
     Active Substance: IRBESARTAN
     Indication: PRODUCT USED FOR UNKNOWN INDICATION
     Dosage: UNK
     Route: 065
  2. ZONEGRAN [Concomitant]
     Active Substance: ZONISAMIDE
     Indication: PRODUCT USED FOR UNKNOWN INDICATION
     Dosage: UNK
     Route: 065
  3. AMPYRA [Suspect]
     Active Substance: DALFAMPRIDINE
     Indication: SPINOCEREBELLAR ATAXIA
     Dosage: 10 MG, Q 12 HRS
     Route: 048
     Dates: start: 201402, end: 20141028
  4. NAMENDA [Concomitant]
     Active Substance: MEMANTINE HYDROCHLORIDE
     Indication: PRODUCT USED FOR UNKNOWN INDICATION
     Dosage: UNK
     Route: 065

REACTIONS (10)
  - Malaise [Unknown]
  - Drug dose omission [Unknown]
  - Heart rate abnormal [Recovering/Resolving]
  - Feeling abnormal [Unknown]
  - Blood pressure abnormal [Recovering/Resolving]
  - Tremor [Unknown]
  - Off label use [Unknown]
  - Vomiting [Unknown]
  - Therapeutic response unexpected [Unknown]
  - Ataxia [Unknown]

NARRATIVE: CASE EVENT DATE: 20141029
